FAERS Safety Report 4910593-3 (Version None)
Quarter: 2006Q1

REPORT INFORMATION
  Report Type: 
  Country: None (occurrence: None)
  Receive Date: 20060214
  Receipt Date: 20060206
  Transmission Date: 20060701
  Serious: Yes (Death)
  Sender: FDA-Public Use
  Company Number: 2006SE00850

PATIENT
  Age: 66 Year
  Sex: Male

DRUGS (3)
  1. CASODEX [Suspect]
     Indication: NEOPLASM PROSTATE
     Route: 048
     Dates: start: 20050501, end: 20060112
  2. ACETAMINOPHEN [Concomitant]
     Indication: INFLUENZA
     Route: 048
     Dates: start: 20060111, end: 20060112
  3. NIMESULIDE [Concomitant]
     Indication: INFLUENZA
     Route: 048
     Dates: start: 20060111, end: 20060112

REACTIONS (2)
  - HEPATIC FAILURE [None]
  - INFLUENZA [None]
